FAERS Safety Report 20617478 (Version 2)
Quarter: 2022Q2

REPORT INFORMATION
  Report Type: Spontaneous
  Country: AU (occurrence: AU)
  Receive Date: 20220321
  Receipt Date: 20220406
  Transmission Date: 20220720
  Serious: Yes (Other)
  Sender: FDA-Public Use
  Company Number: AU-AMERICAN REGENT INC-2022000779

PATIENT
  Age: 51 Year
  Sex: Female

DRUGS (1)
  1. FERINJECT [Suspect]
     Active Substance: FERRIC CARBOXYMALTOSE
     Indication: Iron deficiency
     Dosage: 1000 MG
     Dates: start: 20220221, end: 20220221

REACTIONS (6)
  - Vein rupture [Recovered/Resolved]
  - Circulatory collapse [Recovered/Resolved]
  - Administration site extravasation [Recovered/Resolved]
  - Administration site discolouration [Recovered/Resolved]
  - Infusion site bruising [Recovered/Resolved]
  - Infusion site haematoma [Recovered/Resolved]

NARRATIVE: CASE EVENT DATE: 20220221
